FAERS Safety Report 11104045 (Version 1)
Quarter: 2015Q2

REPORT INFORMATION
  Report Type: Spontaneous
  Country: US (occurrence: None)
  Receive Date: 20150508
  Receipt Date: 20150508
  Transmission Date: 20150821
  Serious: Yes (Other)
  Sender: FDA-Public Use
  Company Number: None

PATIENT
  Age: 38 Year
  Sex: Female
  Weight: 94.35 kg

DRUGS (3)
  1. SHAKEOLOGY DRINK MIX [Concomitant]
  2. APAP [Concomitant]
     Active Substance: ACETAMINOPHEN
  3. CONTRAVE [Suspect]
     Active Substance: BUPROPION HYDROCHLORIDE\NALTREXONE HYDROCHLORIDE
     Indication: WEIGHT DECREASED
     Dosage: CONTRAVENTION SR  ONCE DAILY TAKEN BY MOUTH
     Route: 048
     Dates: start: 20150424, end: 20150430

REACTIONS (3)
  - Dizziness [None]
  - Headache [None]
  - Visual impairment [None]

NARRATIVE: CASE EVENT DATE: 20150429
